FAERS Safety Report 8620185-0 (Version None)
Quarter: 2012Q3

REPORT INFORMATION
  Report Type: 
  Country: None (occurrence: None)
  Receive Date: 20120824
  Receipt Date: 20120817
  Transmission Date: 20120928
  Serious: Yes (Other)
  Sender: FDA-Public Use
  Company Number: PHHY2012BR071892

PATIENT
  Sex: Female
  Weight: 85 kg

DRUGS (2)
  1. CAPTOPRIL [Suspect]
     Indication: HYPERTENSION
     Dosage: 1 TABLET AT MORNING AND 1 TABLET AT NIGHT
  2. CAFFEINE CITRATE [Concomitant]
     Indication: MIGRAINE
     Dosage: 1 DF, PRN
     Route: 048

REACTIONS (3)
  - RENAL DISORDER [None]
  - RENAL LIPOMATOSIS [None]
  - CHOLELITHIASIS [None]
